FAERS Safety Report 24111298 (Version 1)
Quarter: 2024Q3

REPORT INFORMATION
  Report Type: Spontaneous
  Country: PL (occurrence: PL)
  Receive Date: 20240718
  Receipt Date: 20240718
  Transmission Date: 20241016
  Serious: Yes (Life-Threatening, Hospitalization)
  Sender: PURDUE
  Company Number: None

PATIENT
  Age: 73 Year
  Sex: Female

DRUGS (12)
  1. MORPHINE [Suspect]
     Active Substance: MORPHINE
     Indication: Product used for unknown indication
     Dosage: DOSAGE REGIMEN 1-1-1
     Route: 048
  2. PREGABALIN [Suspect]
     Active Substance: PREGABALIN
     Indication: Product used for unknown indication
     Dosage: DOSAGE REGIMEN 1-0-1
     Route: 048
  3. FENTANYL [Suspect]
     Active Substance: FENTANYL\FENTANYL CITRATE
     Indication: Product used for unknown indication
     Dosage: CHANGE THE PATCH EVERY 72 HOURS
     Route: 065
  4. DEXAMETHASONE [Concomitant]
     Active Substance: DEXAMETHASONE
     Indication: Product used for unknown indication
     Dosage: 2 TIMES A WEEK (MONDAY, THURSDAY)
     Route: 048
  5. ENOXAPARIN SODIUM [Concomitant]
     Active Substance: ENOXAPARIN SODIUM
     Indication: Product used for unknown indication
     Dosage: 40 MILLIGRAM, DAILY
     Route: 058
  6. RAMIZEK [Concomitant]
     Indication: Product used for unknown indication
     Dosage: DOSAGE REGIMEN 1-0-0
     Route: 048
  7. POTASSIUM CHLORIDE [Concomitant]
     Active Substance: POTASSIUM CHLORIDE
     Indication: Product used for unknown indication
     Dosage: DOSAGE REGIMEN 1-1-1
     Route: 048
  8. IPRATROPIUM BROMIDE [Concomitant]
     Active Substance: IPRATROPIUM BROMIDE\IPRATROPIUM BROMIDE ANHYDROUS
     Indication: Product used for unknown indication
     Dosage: 2 DOSES IN CASE OF DYSPNOEA
  9. OMEPRAZOLE [Concomitant]
     Active Substance: OMEPRAZOLE
     Indication: Product used for unknown indication
     Dosage: DOSAGE REGIMEN 1-0-0 ON EMPTY STOMACH
     Route: 048
  10. LEVOTHYROXINE SODIUM [Concomitant]
     Active Substance: LEVOTHYROXINE SODIUM
     Indication: Product used for unknown indication
     Dosage: DOSAGE REGIMEN 1-0-0 ON EMPTY STOMACH
     Route: 048
  11. LACTULOSUM HASCO [Concomitant]
     Indication: Product used for unknown indication
     Dosage: DOSAGE REGIMEN 1-1-1
     Route: 048
  12. ACARD [Concomitant]
     Indication: Product used for unknown indication
     Dosage: DOSAGE REGIMEN 1-0-0
     Route: 048

REACTIONS (4)
  - Pneumonia [Unknown]
  - Acute respiratory failure [Unknown]
  - Decreased appetite [Not Recovered/Not Resolved]
  - Asthenia [Not Recovered/Not Resolved]

NARRATIVE: CASE EVENT DATE: 20240217
